FAERS Safety Report 9378076 (Version 2)
Quarter: 2013Q3

REPORT INFORMATION
  Report Type: Spontaneous
  Country: FR (occurrence: FR)
  Receive Date: 20130701
  Receipt Date: 20130709
  Transmission Date: 20140515
  Serious: Yes (Hospitalization)
  Sender: FDA-Public Use
  Company Number: FR-VERTEX PHARMACEUTICALS INC-2013-007590

PATIENT
  Age: 52 Year
  Sex: Female

DRUGS (8)
  1. INCIVO [Suspect]
     Indication: CHRONIC HEPATITIS C
     Dosage: 1125 MG, BID
     Route: 048
     Dates: start: 20130309
  2. RIBAVIRIN [Suspect]
     Indication: CHRONIC HEPATITIS C
     Dosage: DOSAGE FORM: UNKNOWN
     Route: 048
     Dates: start: 20130309
  3. PEGINTERFERON ALFA 2A [Suspect]
     Indication: CHRONIC HEPATITIS C
     Dosage: DOSAGE FORM: UNSPECIFIED
     Route: 058
     Dates: start: 20130309
  4. FLUOXETINE HYDROCHLORIDE [Concomitant]
     Indication: DEPRESSION
     Dosage: 20 MG, PRN
     Route: 048
     Dates: start: 20130418
  5. SERESTA [Concomitant]
     Indication: ANXIETY
     Dosage: 10 MG, PRN
     Route: 048
     Dates: start: 20130418
  6. EPOETIN BETA [Concomitant]
  7. LANSOPRAZOLE [Concomitant]
  8. WHOLE BLOOD [Concomitant]

REACTIONS (7)
  - Malaise [Recovered/Resolved]
  - General physical health deterioration [Unknown]
  - Anaemia [Unknown]
  - Loss of consciousness [Recovered/Resolved]
  - Abdominal pain upper [Unknown]
  - Weight decreased [Unknown]
  - Vomiting [Unknown]
